FAERS Safety Report 21812682 (Version 2)
Quarter: 2023Q1

REPORT INFORMATION
  Report Type: Report from Study
  Country: CN (occurrence: CN)
  Receive Date: 20230103
  Receipt Date: 20230105
  Transmission Date: 20230417
  Serious: Yes (Life-Threatening, Other)
  Sender: FDA-Public Use
  Company Number: CN-TAKEDA-2022TUS045761

PATIENT
  Age: 33 Year
  Sex: Female
  Weight: 48 kg

DRUGS (14)
  1. BRENTUXIMAB VEDOTIN [Suspect]
     Active Substance: BRENTUXIMAB VEDOTIN
     Indication: Diffuse large B-cell lymphoma
     Dosage: 100 MILLIGRAM
     Route: 041
     Dates: start: 20220317
  2. ITOLIZUMAB [Suspect]
     Active Substance: ITOLIZUMAB
     Indication: Lymphoma
     Dosage: 100 MILLIGRAM, QD
     Route: 042
     Dates: start: 20220317, end: 20220320
  3. ETOPOSIDE PHOSPHATE [Suspect]
     Active Substance: ETOPOSIDE PHOSPHATE
     Indication: Lymphoma
     Dosage: UNK UNK, QD
     Route: 042
     Dates: start: 20220317, end: 20220320
  4. CARBOPLATIN [Suspect]
     Active Substance: CARBOPLATIN
     Indication: Lymphoma
     Dosage: UNK UNK, QD
     Route: 042
     Dates: start: 20220317, end: 20220320
  5. IFOSFAMIDE [Suspect]
     Active Substance: IFOSFAMIDE
     Indication: Lymphoma
     Dosage: UNK, QD
     Route: 042
     Dates: start: 20220317, end: 20220320
  6. MESNA [Suspect]
     Active Substance: MESNA
     Indication: Lymphoma
     Dosage: UNK, QD
     Route: 042
     Dates: start: 20220317, end: 20220320
  7. ACETAMINOPHEN [Concomitant]
     Active Substance: ACETAMINOPHEN
     Indication: Analgesic therapy
     Dosage: UNK
     Route: 048
     Dates: start: 20220518, end: 20220518
  8. DEXAMETHASONE SODIUM PHOSPHATE [Concomitant]
     Active Substance: DEXAMETHASONE SODIUM PHOSPHATE
     Indication: Prophylaxis
     Dosage: 2.5 MILLIGRAM
     Route: 042
     Dates: start: 20220521, end: 20220521
  9. CALCIUM GLUCONATE [Concomitant]
     Active Substance: CALCIUM GLUCONATE
     Indication: Prophylaxis
     Dosage: 1 GRAM
     Route: 042
     Dates: start: 20220521, end: 20220521
  10. CALCIUM GLUCONATE [Concomitant]
     Active Substance: CALCIUM GLUCONATE
     Dosage: 10 MILLILITER
     Route: 048
     Dates: start: 20220521, end: 20220521
  11. PLERIXAFOR [PLERIXAFOR OCTAHYDROCHLORIDE] [Concomitant]
     Indication: Haematopoietic stem cell mobilisation
     Dosage: 1.2 MILLILITER
     Route: 058
     Dates: start: 20220520, end: 20220520
  12. PROMETHAZINE HYDROCHLORIDE [Concomitant]
     Active Substance: PROMETHAZINE HYDROCHLORIDE
     Indication: Hypersensitivity
     Dosage: 25 MILLIGRAM
     Route: 030
     Dates: start: 20220520, end: 20220520
  13. LIDOCAIN HYDROCHLORIDE [Concomitant]
     Indication: Analgesic therapy
     Dosage: 0.1 GRAM
     Route: 065
     Dates: start: 20220801, end: 20220801
  14. DEXAMETHASONE SODIUM PHOSPHATE [Concomitant]
     Active Substance: DEXAMETHASONE SODIUM PHOSPHATE
     Indication: Prophylaxis
     Dosage: 2.5 MILLIGRAM
     Route: 042
     Dates: start: 20220729, end: 20220729

REACTIONS (39)
  - Lymphocyte count decreased [Not Recovered/Not Resolved]
  - White blood cell count decreased [Not Recovered/Not Resolved]
  - Early repolarisation syndrome [Recovered/Resolved]
  - Electrocardiogram QT prolonged [Not Recovered/Not Resolved]
  - Hypokalaemia [Not Recovered/Not Resolved]
  - Left ventricular hypertrophy [Not Recovered/Not Resolved]
  - White blood cell count increased [Not Recovered/Not Resolved]
  - Anaemia [Not Recovered/Not Resolved]
  - Neutrophil percentage increased [Not Recovered/Not Resolved]
  - Urinary tract infection [Not Recovered/Not Resolved]
  - Platelet count decreased [Not Recovered/Not Resolved]
  - C-reactive protein increased [Not Recovered/Not Resolved]
  - Protein total decreased [Recovered/Resolved]
  - Monocyte count increased [Recovered/Resolved]
  - Neutrophil count increased [Not Recovered/Not Resolved]
  - Hyponatraemia [Recovered/Resolved]
  - Mouth ulceration [Recovered/Resolved]
  - Dyspepsia [Recovered/Resolved]
  - Pulmonary mass [Not Recovered/Not Resolved]
  - Globulins decreased [Recovered/Resolved]
  - Fibrin D dimer increased [Not Recovered/Not Resolved]
  - Neutrophil count decreased [Not Recovered/Not Resolved]
  - Hypoalbuminaemia [Not Recovered/Not Resolved]
  - Occult blood positive [Not Recovered/Not Resolved]
  - Hypocalcaemia [Not Recovered/Not Resolved]
  - Hypophosphataemia [Recovered/Resolved]
  - Prealbumin abnormal [Recovered/Resolved]
  - Blood glucose increased [Recovered/Resolved]
  - Monocyte percentage decreased [Recovered/Resolved]
  - Neutrophil percentage decreased [Recovering/Resolving]
  - Glutamate dehydrogenase increased [Recovered/Resolved]
  - Bilirubin conjugated increased [Recovered/Resolved]
  - Blood alkaline phosphatase increased [Recovered/Resolved]
  - Coagulation test abnormal [Not Recovered/Not Resolved]
  - Blood urea increased [Recovered/Resolved]
  - Alanine aminotransferase increased [Not Recovered/Not Resolved]
  - Pyrexia [Recovered/Resolved]
  - Diarrhoea [Recovered/Resolved]
  - Off label use [Not Recovered/Not Resolved]

NARRATIVE: CASE EVENT DATE: 20220317
